FAERS Safety Report 7315214-0 (Version None)
Quarter: 2011Q1

REPORT INFORMATION
  Report Type: 
  Country: None (occurrence: None)
  Receive Date: 20110225
  Receipt Date: 20110218
  Transmission Date: 20110831
  Serious: Yes (Hospitalization)
  Sender: FDA-Public Use
  Company Number: CO-ROCHE-747131

PATIENT
  Sex: Female

DRUGS (1)
  1. ACTEMRA [Suspect]
     Indication: RHEUMATOID ARTHRITIS
     Dosage: LAST INFUSION WAS ON 23 JANUARY 2011
     Route: 042
     Dates: start: 20101108

REACTIONS (5)
  - ABDOMINAL PAIN [None]
  - VOMITING [None]
  - DECREASED APPETITE [None]
  - HAEMATEMESIS [None]
  - ARTHRALGIA [None]
